FAERS Safety Report 7554779-0 (Version None)
Quarter: 2011Q2

REPORT INFORMATION
  Report Type: 
  Country: None (occurrence: None)
  Receive Date: 20110617
  Receipt Date: 20110613
  Transmission Date: 20111010
  Serious: Yes (Other)
  Sender: FDA-Public Use
  Company Number: MX-BRISTOL-MYERS SQUIBB COMPANY-15080211

PATIENT
  Age: 65 Year
  Sex: Male

DRUGS (5)
  1. MULTI-VITAMINS [Concomitant]
     Dates: start: 20080616
  2. DIGOXIN [Concomitant]
     Dates: start: 20080601
  3. METFORMIN HCL [Concomitant]
     Dates: start: 20080601
  4. WARFARIN SODIUM [Suspect]
     Indication: THROMBOSIS PROPHYLAXIS
     Dosage: INTERRUPTED ON 24APR10
     Route: 048
     Dates: start: 20090625
  5. PLACEBO [Suspect]
     Indication: THROMBOSIS PROPHYLAXIS
     Dosage: INTERRUPTED ON 24APR10
     Route: 048
     Dates: start: 20090625

REACTIONS (1)
  - BLOOD CREATINE PHOSPHOKINASE INCREASED [None]
